FAERS Safety Report 7485660-3 (Version None)
Quarter: 2011Q2

REPORT INFORMATION
  Report Type: 
  Country: None (occurrence: None)
  Receive Date: 20110517
  Receipt Date: 20110503
  Transmission Date: 20111010
  Serious: Yes (Other)
  Sender: FDA-Public Use
  Company Number: CA-JNJFOC-20110502540

PATIENT
  Sex: Male
  Weight: 94 kg

DRUGS (3)
  1. IMURAN [Concomitant]
  2. VITAMINS NOS [Concomitant]
  3. REMICADE [Suspect]
     Indication: CROHN'S DISEASE
     Route: 042
     Dates: start: 20100901

REACTIONS (1)
  - RETINAL HAEMORRHAGE [None]
